FAERS Safety Report 8531219-6 (Version None)
Quarter: 2012Q3

REPORT INFORMATION
  Report Type: 
  Country: None (occurrence: None)
  Receive Date: 20120723
  Receipt Date: 20120618
  Transmission Date: 20120928
  Serious: Yes (Hospitalization)
  Sender: FDA-Public Use
  Company Number: MX-UCBSA-053498

PATIENT
  Age: 42 Year
  Sex: Male
  Weight: 67 kg

DRUGS (1)
  1. CIMZIA [Suspect]
     Indication: SPONDYLITIS
     Route: 030
     Dates: start: 20110404, end: 20120313

REACTIONS (1)
  - TUBERCULOSIS [None]
